FAERS Safety Report 7293246-9 (Version None)
Quarter: 2011Q1

REPORT INFORMATION
  Report Type: 
  Country: None (occurrence: None)
  Receive Date: 20110204
  Receipt Date: 20110121
  Transmission Date: 20110831
  Serious: Yes (Other)
  Sender: FDA-Public Use
  Company Number: 2011SP003812

PATIENT
  Sex: Male

DRUGS (2)
  1. PEG-INTRON [Suspect]
     Indication: HEPATITIS
     Dates: start: 20090801, end: 20100501
  2. RIBAVIRIN [Suspect]
     Indication: HEPATITIS
     Dates: start: 20090801, end: 20100501

REACTIONS (3)
  - DEPRESSION [None]
  - FAMILY STRESS [None]
  - BLOOD IRON INCREASED [None]
